FAERS Safety Report 8338065-7 (Version None)
Quarter: 2012Q1

REPORT INFORMATION
  Report Type: 
  Country: None (occurrence: None)
  Receive Date: 20120329
  Receipt Date: 20101228
  Transmission Date: 20120608
  Serious: Yes (Hospitalization)
  Sender: FDA-Public Use
  Company Number: PHHY2010US88954

PATIENT
  Sex: Female

DRUGS (6)
  1. REMERON [Concomitant]
  2. PAXAL [Concomitant]
  3. CARBIDOPA (CARBIDOPA) [Concomitant]
  4. VIADIN [Concomitant]
  5. EXELON [Suspect]
     Dosage: 9.5 MG, DAILY, TRANSDERMAL
     Route: 062
  6. NAMENDA [Concomitant]

REACTIONS (5)
  - CONFUSIONAL STATE [None]
  - WRONG TECHNIQUE IN DRUG USAGE PROCESS [None]
  - DECREASED APPETITE [None]
  - NAUSEA [None]
  - DEHYDRATION [None]
